FAERS Safety Report 4283634-7 (Version None)
Quarter: 2004Q1

REPORT INFORMATION
  Report Type: 
  Country: None (occurrence: None)
  Receive Date: 20040129
  Receipt Date: 20040129
  Transmission Date: 20041129
  Serious: Yes (Hospitalization)
  Sender: FDA-Public Use
  Company Number: None

PATIENT
  Age: 15 Year
  Sex: Male
  Weight: 57.2 kg

DRUGS (4)
  1. ADDERALL XR 10 [Suspect]
     Dosage: 20 MG PO QD
     Route: 048
     Dates: end: 20040101
  2. TYLENOL (CAPLET) [Concomitant]
  3. MOM [Concomitant]
  4. MAALOX [Concomitant]

REACTIONS (2)
  - EXHIBITIONISM [None]
  - HALLUCINATION, VISUAL [None]
